FAERS Safety Report 17396833 (Version 2)
Quarter: 2020Q1

REPORT INFORMATION
  Report Type: Report from Study
  Country: None (occurrence: US)
  Receive Date: 20200210
  Receipt Date: 20200323
  Transmission Date: 20200409
  Serious: Yes (Hospitalization)
  Sender: FDA-Public Use
  Company Number: US-ABBVIE-20K-163-3265162-00

PATIENT
  Sex: Male

DRUGS (1)
  1. HUMIRA [Suspect]
     Active Substance: ADALIMUMAB
     Indication: CROHN^S DISEASE
     Route: 058
     Dates: start: 20191210

REACTIONS (20)
  - Small intestinal obstruction [Recovered/Resolved]
  - Fatigue [Not Recovered/Not Resolved]
  - Diarrhoea [Recovering/Resolving]
  - Gastrointestinal sounds abnormal [Recovered/Resolved]
  - Decreased appetite [Unknown]
  - Abnormal faeces [Recovering/Resolving]
  - Weight decreased [Unknown]
  - Post procedural complication [Unknown]
  - Pain [Recovered/Resolved]
  - Vomiting [Unknown]
  - Asthenia [Recovered/Resolved]
  - Therapeutic response unexpected [Unknown]
  - Abdominal pain upper [Recovering/Resolving]
  - Allergy to plants [Unknown]
  - Skin ulcer [Recovering/Resolving]
  - Influenza like illness [Recovered/Resolved]
  - Malaise [Unknown]
  - Nausea [Unknown]
  - Dyspepsia [Recovered/Resolved]
  - Cough [Unknown]
